FAERS Safety Report 11782400 (Version 1)
Quarter: 2015Q4

REPORT INFORMATION
  Report Type: Spontaneous
  Country: IT (occurrence: IT)
  Receive Date: 20151127
  Receipt Date: 20151127
  Transmission Date: 20160305
  Serious: Yes (Hospitalization)
  Sender: FDA-Public Use
  Company Number: IT-ACCORD-035692

PATIENT
  Age: 68 Year
  Sex: Male
  Weight: 80 kg

DRUGS (3)
  1. OXALIPLATIN. [Suspect]
     Active Substance: OXALIPLATIN
     Indication: COLON CANCER
     Route: 041
     Dates: start: 20150427, end: 20151012
  2. FLUOROURACIL. [Suspect]
     Active Substance: FLUOROURACIL
     Indication: COLON CANCER
     Dosage: ALSO RECEIVED INTRAVENOUS BOLUS AT THE DOSE OF 750 MG CYCLICAL FROM 27-APR-2015 TO 13-OCT-2015
     Route: 041
     Dates: start: 20150427, end: 20151013
  3. AVASTIN [Concomitant]
     Active Substance: BEVACIZUMAB
     Indication: COLON NEOPLASM
     Dosage: STRENGTH: 400 MG
     Route: 041
     Dates: start: 20150513, end: 20151014

REACTIONS (5)
  - Febrile neutropenia [Recovered/Resolved]
  - Mucosal inflammation [Recovered/Resolved]
  - Thrombocytopenia [Recovered/Resolved]
  - Asthenia [Recovered/Resolved]
  - Diarrhoea [Recovered/Resolved]

NARRATIVE: CASE EVENT DATE: 20150619
